FAERS Safety Report 22668454 (Version 4)
Quarter: 2023Q4

REPORT INFORMATION
  Report Type: Spontaneous
  Country: US (occurrence: US)
  Receive Date: 20230704
  Receipt Date: 20231120
  Transmission Date: 20240109
  Serious: No
  Sender: FDA-Public Use
  Company Number: US-BRISTOL-MYERS SQUIBB COMPANY-2023-093127

PATIENT
  Age: 73 Year
  Sex: Female
  Weight: 68.04 kg

DRUGS (2)
  1. POMALYST [Suspect]
     Active Substance: POMALIDOMIDE
     Indication: Malignant lymphoid neoplasm
     Dosage: FREQUENCY: DAILY 1-21, THEN 7 DAYS OFF
     Route: 048
     Dates: start: 20210909
  2. POMALYST [Suspect]
     Active Substance: POMALIDOMIDE
     Indication: Plasma cell myeloma

REACTIONS (13)
  - Treatment noncompliance [Unknown]
  - Off label use [Unknown]
  - Gastrointestinal motility disorder [Recovered/Resolved with Sequelae]
  - Pollakiuria [Recovered/Resolved with Sequelae]
  - Rhinorrhoea [Not Recovered/Not Resolved]
  - Red blood cell count decreased [Unknown]
  - Haematocrit decreased [Unknown]
  - Haemoglobin decreased [Unknown]
  - Blood creatinine decreased [Unknown]
  - Blood albumin decreased [Unknown]
  - Alanine aminotransferase decreased [Unknown]
  - Red cell distribution width increased [Unknown]
  - Basophil count increased [Unknown]
